FAERS Safety Report 16953830 (Version 1)
Quarter: 2019Q4

REPORT INFORMATION
  Report Type: Spontaneous
  Country: CN (occurrence: CN)
  Receive Date: 20191023
  Receipt Date: 20191023
  Transmission Date: 20200122
  Serious: Yes (Other)
  Sender: FDA-Public Use
  Company Number: CN-BAYER-2019-185298

PATIENT
  Age: 64 Year
  Sex: Female

DRUGS (1)
  1. AVELOX [Suspect]
     Active Substance: MOXIFLOXACIN HYDROCHLORIDE
     Dosage: UNK
     Route: 041
     Dates: start: 20191009, end: 20191011

REACTIONS (16)
  - Trance [None]
  - Aphasia [Not Recovered/Not Resolved]
  - Neuropathy peripheral [None]
  - Nervous system disorder [Not Recovered/Not Resolved]
  - Depression suicidal [None]
  - Discomfort [None]
  - Tremor [Not Recovered/Not Resolved]
  - Insomnia [Not Recovered/Not Resolved]
  - Impaired self-care [Not Recovered/Not Resolved]
  - Major depression [Not Recovered/Not Resolved]
  - Disability [Not Recovered/Not Resolved]
  - Asphyxia [None]
  - Hypoaesthesia [Not Recovered/Not Resolved]
  - Dyspnoea [Not Recovered/Not Resolved]
  - Feeding disorder [Not Recovered/Not Resolved]
  - Nausea [Not Recovered/Not Resolved]

NARRATIVE: CASE EVENT DATE: 201910
